FAERS Safety Report 7517961-4 (Version None)
Quarter: 2011Q2

REPORT INFORMATION
  Report Type: 
  Country: None (occurrence: None)
  Receive Date: 20110523
  Receipt Date: 20110506
  Transmission Date: 20111010
  Serious: Yes (Other)
  Sender: FDA-Public Use
  Company Number: AUR-APL-2011-01642

PATIENT
  Age: 18 Year
  Sex: Female
  Weight: 46.26 kg

DRUGS (4)
  1. CITALOPRAM HYDROBROMIDE [Suspect]
     Indication: DEPRESSION
     Dosage: 10-15MG-DAILY - ORAL
     Route: 048
     Dates: start: 20080101
  2. LEVOTHYROXINE SODIUM [Concomitant]
  3. CALCITRIOL [Concomitant]
  4. FINASTERIDE [Suspect]

REACTIONS (9)
  - MOOD SWINGS [None]
  - VITAMIN D DECREASED [None]
  - DRUG INEFFECTIVE [None]
  - MALAISE [None]
  - MENSTRUATION IRREGULAR [None]
  - ABNORMAL BEHAVIOUR [None]
  - HAIR GROWTH ABNORMAL [None]
  - CANDIDIASIS [None]
  - DEPRESSION [None]
